FAERS Safety Report 7784879-1 (Version None)
Quarter: 2011Q3

REPORT INFORMATION
  Report Type: 
  Country: None (occurrence: None)
  Receive Date: 20110928
  Receipt Date: 20110923
  Transmission Date: 20111222
  Serious: Yes (Death)
  Sender: FDA-Public Use
  Company Number: TN-SANOFI-AVENTIS-2011SA062828

PATIENT
  Age: 59 Year
  Sex: Female

DRUGS (7)
  1. PLAVIX [Suspect]
     Route: 048
     Dates: start: 20101222, end: 20110101
  2. CORVASAL [Concomitant]
     Route: 048
     Dates: end: 20110101
  3. ATORVASTATIN [Concomitant]
     Route: 048
     Dates: end: 20110101
  4. PLAVIX [Suspect]
     Route: 048
     Dates: start: 20101222, end: 20110101
  5. PLAVIX [Suspect]
     Indication: CORONARY ARTERIAL STENT INSERTION
     Route: 048
     Dates: start: 20101222, end: 20110101
  6. CORDARONE [Concomitant]
     Route: 048
     Dates: end: 20110101
  7. FAMODINE [Concomitant]
     Route: 048
     Dates: end: 20110101

REACTIONS (2)
  - CARDIAC ARREST [None]
  - RENAL FAILURE CHRONIC [None]
